FAERS Safety Report 13688590 (Version 1)
Quarter: 2017Q2

REPORT INFORMATION
  Report Type: Report from Study
  Country: BR (occurrence: BR)
  Receive Date: 20170626
  Receipt Date: 20170626
  Transmission Date: 20170830
  Serious: Yes (Death)
  Sender: FDA-Public Use
  Company Number: PHHY2017BR093314

PATIENT
  Sex: Male
  Weight: 70 kg

DRUGS (1)
  1. EXELON PATCH [Suspect]
     Active Substance: RIVASTIGMINE
     Indication: MOOD ALTERED
     Dosage: 4.6 MG (PATCH 5 (CM2)), QD
     Route: 062
     Dates: start: 201511, end: 201606

REACTIONS (3)
  - Sepsis [Fatal]
  - Product use in unapproved indication [Unknown]
  - Pneumonia [Fatal]
